FAERS Safety Report 13449455 (Version 1)
Quarter: 2017Q2

REPORT INFORMATION
  Report Type: Other
  Country: CA (occurrence: CA)
  Receive Date: 20170417
  Receipt Date: 20170417
  Transmission Date: 20170830
  Serious: Yes (Other)
  Sender: FDA-Public Use
  Company Number: CA-APOTEX-2017AP009965

PATIENT
  Sex: Male

DRUGS (8)
  1. APO-FENTANYL MATRIX [Suspect]
     Active Substance: FENTANYL
     Dosage: 150 DF, UNK
     Route: 062
  2. APO-FENTANYL MATRIX [Suspect]
     Active Substance: FENTANYL
     Dosage: 37 DF, UNK
     Route: 062
  3. APO-FENTANYL MATRIX [Suspect]
     Active Substance: FENTANYL
     Indication: ANALGESIC THERAPY
     Dosage: 65 DF, UNK
     Route: 062
  4. APO-FENTANYL MATRIX [Suspect]
     Active Substance: FENTANYL
     Dosage: 25 DF, UNK
     Route: 062
  5. APO-FENTANYL MATRIX [Suspect]
     Active Substance: FENTANYL
     Indication: PAIN
     Dosage: 75 DF, UNK
     Route: 062
  6. APO-FENTANYL MATRIX [Suspect]
     Active Substance: FENTANYL
     Dosage: 100 DF, UNK
     Route: 062
  7. APO-FENTANYL MATRIX [Suspect]
     Active Substance: FENTANYL
     Dosage: 12.5 DF, UNK
     Route: 062
  8. APO-FENTANYL MATRIX [Suspect]
     Active Substance: FENTANYL
     Dosage: 50 DF, UNK
     Route: 062

REACTIONS (6)
  - Drug administration error [Recovered/Resolved]
  - Osteoporosis [Recovered/Resolved]
  - Malaise [Unknown]
  - Blood testosterone decreased [Recovered/Resolved]
  - Hallucination [Recovered/Resolved]
  - Off label use [Recovered/Resolved]
